FAERS Safety Report 5714467-X (Version None)
Quarter: 2008Q2

REPORT INFORMATION
  Report Type: 
  Country: None (occurrence: None)
  Receive Date: 20080423
  Receipt Date: 20080414
  Transmission Date: 20081010
  Serious: Yes (Other)
  Sender: FDA-Public Use
  Company Number: PHHY2008GB06087

PATIENT
  Age: 88 Year
  Sex: Male

DRUGS (6)
  1. GLEEVEC [Suspect]
     Indication: CHRONIC MYELOID LEUKAEMIA
     Dosage: 400 MG, QD
     Route: 048
     Dates: start: 20020314, end: 20071213
  2. GLEEVEC [Suspect]
     Dosage: 300 MG, QD
     Route: 048
     Dates: start: 20071213
  3. HYDROXYUREA [Concomitant]
     Dosage: 500 MG, QD
     Route: 048
     Dates: start: 20020307
  4. HYDROXYUREA [Concomitant]
     Dosage: 2 G, QD
     Route: 048
     Dates: end: 20020328
  5. FUROSEMIDE [Concomitant]
  6. AMOXICILLIN [Concomitant]

REACTIONS (6)
  - ALOPECIA [None]
  - CELLULITIS [None]
  - EYELID OEDEMA [None]
  - HAEMOGLOBIN DECREASED [None]
  - OEDEMA PERIPHERAL [None]
  - RASH [None]
